FAERS Safety Report 5907690-2 (Version None)
Quarter: 2008Q4

REPORT INFORMATION
  Report Type: 
  Country: None (occurrence: None)
  Receive Date: 20081003
  Receipt Date: 20020218
  Transmission Date: 20090506
  Serious: Yes (Death, Other)
  Sender: FDA-Public Use
  Company Number: US-ROCHE-307455

PATIENT
  Sex: Female

DRUGS (1)
  1. ACCUTANE [Suspect]
     Indication: HYPERKERATOSIS
     Route: 048
     Dates: start: 20010202, end: 20010512

REACTIONS (2)
  - DEATH [None]
  - SEPSIS [None]
